FAERS Safety Report 23570423 (Version 1)
Quarter: 2024Q1

REPORT INFORMATION
  Report Type: Spontaneous
  Country: US (occurrence: None)
  Receive Date: 20240226
  Receipt Date: 20240226
  Transmission Date: 20240409
  Serious: No
  Sender: FDA-Public Use
  Company Number: None

PATIENT
  Sex: Female

DRUGS (1)
  1. NEXPLANON [Suspect]
     Active Substance: ETONOGESTREL
     Indication: Contraceptive implant
     Dosage: FREQUENCY : ONCE;?OTHER ROUTE : SUBDERMALLY;?
     Route: 058
     Dates: start: 201811

REACTIONS (1)
  - Device ineffective [None]
